FAERS Safety Report 9527577 (Version 1)
Quarter: 2013Q1

REPORT INFORMATION
  Report Type: Spontaneous
  Country: US (occurrence: None)
  Receive Date: 20130311
  Receipt Date: 20130311
  Transmission Date: 20140127
  Serious: No
  Sender: FDA-Public Use
  Company Number: 1301USA005428

PATIENT
  Sex: Female

DRUGS (1)
  1. ZIOPTAN [Suspect]
     Dosage: UNK, OPHTHALMIC
     Route: 047
     Dates: start: 201208, end: 20130107

REACTIONS (4)
  - Visual acuity reduced [None]
  - Headache [None]
  - Eye pain [None]
  - Vision blurred [None]
